FAERS Safety Report 8718961 (Version 3)
Quarter: 2013Q1

REPORT INFORMATION
  Report Type: Spontaneous
  Country: US (occurrence: US)
  Receive Date: 20120811
  Receipt Date: 20130220
  Transmission Date: 20140127
  Serious: No
  Sender: FDA-Public Use
  Company Number: US-009507513-1208USA003124

PATIENT
  Age: 29 None
  Sex: Female

DRUGS (1)
  1. IMPLANON [Suspect]
     Indication: CONTRACEPTION
     Dosage: 68 MG, 3 YEARS
     Route: 058
     Dates: start: 20120228, end: 20120813

REACTIONS (2)
  - Pyrexia [Recovered/Resolved]
  - Headache [Not Recovered/Not Resolved]
